FAERS Safety Report 14582114 (Version 10)
Quarter: 2023Q1

REPORT INFORMATION
  Report Type: Spontaneous
  Country: US (occurrence: US)
  Receive Date: 20180228
  Receipt Date: 20230112
  Transmission Date: 20230417
  Serious: No
  Sender: FDA-Public Use
  Company Number: US-PFIZER INC-2018081329

PATIENT
  Age: 66 Year
  Sex: Female

DRUGS (3)
  1. EUCRISA [Suspect]
     Active Substance: CRISABOROLE
     Indication: Pruritus
     Dosage: 2X/DAY (APPLY TO AFFECTED AREA TWICE A DAY)
  2. EUCRISA [Suspect]
     Active Substance: CRISABOROLE
     Dosage: UNK
  3. EUCRISA [Suspect]
     Active Substance: CRISABOROLE
     Dosage: UNK, [(DIRECTIONS FOR USE (PLEASE INCLUDE LOCATION ON THE BODY) HANDS]

REACTIONS (2)
  - Expired product administered [Unknown]
  - Application site pain [Unknown]
